FAERS Safety Report 14979113 (Version 2)
Quarter: 2018Q2

REPORT INFORMATION
  Report Type: Report from Study
  Country: US (occurrence: US)
  Receive Date: 20180606
  Receipt Date: 20180607
  Transmission Date: 20180711
  Serious: Yes (Death, Other)
  Sender: FDA-Public Use
  Company Number: US-BAYER-2018-103476

PATIENT
  Age: 62 Year
  Sex: Male

DRUGS (1)
  1. REGORAFENIB. [Suspect]
     Active Substance: REGORAFENIB
     Indication: HEPATOCELLULAR CARCINOMA
     Dosage: 120 MG PER DAY
     Dates: start: 201708

REACTIONS (5)
  - Asthenia [None]
  - Death [Fatal]
  - Diarrhoea [None]
  - Hepatocellular carcinoma [None]
  - Metastases to chest wall [None]
